FAERS Safety Report 21303418 (Version 9)
Quarter: 2023Q1

REPORT INFORMATION
  Report Type: Report from Study
  Country: CA (occurrence: CA)
  Receive Date: 20220907
  Receipt Date: 20230210
  Transmission Date: 20230418
  Serious: Yes (Other)
  Sender: FDA-Public Use
  Company Number: CA-TAKEDA-2022TUS061338

PATIENT
  Age: 68 Year
  Sex: Male

DRUGS (5)
  1. VEDOLIZUMAB [Suspect]
     Active Substance: VEDOLIZUMAB
     Indication: Colitis ulcerative
     Dosage: 300 MILLIGRAM
     Route: 042
     Dates: start: 20220803
  2. VEDOLIZUMAB [Suspect]
     Active Substance: VEDOLIZUMAB
     Dosage: 300 MILLIGRAM, Q4WEEKS
     Route: 042
     Dates: start: 20221101
  3. VEDOLIZUMAB [Suspect]
     Active Substance: VEDOLIZUMAB
     Dosage: 300 MILLIGRAM, Q4WEEKS
     Route: 042
     Dates: end: 20230110
  4. Salofalk [Concomitant]
     Dosage: UNK UNK, QID
     Dates: start: 202206
  5. MESALAMINE [Concomitant]
     Active Substance: MESALAMINE
     Dosage: UNK UNK, QID
     Dates: start: 2021

REACTIONS (18)
  - Sudden hearing loss [Unknown]
  - Haematochezia [Not Recovered/Not Resolved]
  - Pneumonia [Unknown]
  - Rash pruritic [Unknown]
  - Rash erythematous [Unknown]
  - Frequent bowel movements [Not Recovered/Not Resolved]
  - Dry skin [Unknown]
  - Malaise [Recovering/Resolving]
  - Mucous stools [Unknown]
  - Diarrhoea [Unknown]
  - Defaecation urgency [Unknown]
  - Middle ear effusion [Unknown]
  - Ear pain [Unknown]
  - Acne [Unknown]
  - Flatulence [Unknown]
  - Fatigue [Recovering/Resolving]
  - Drug ineffective [Unknown]
  - Off label use [Unknown]

NARRATIVE: CASE EVENT DATE: 20221101
